FAERS Safety Report 11201331 (Version 1)
Quarter: 2015Q2

REPORT INFORMATION
  Report Type: Spontaneous
  Country: US (occurrence: None)
  Receive Date: 20150618
  Receipt Date: 20150618
  Transmission Date: 20150821
  Serious: Yes (Death)
  Sender: FDA-Public Use
  Company Number: None

PATIENT
  Age: 21 Year
  Sex: Female
  Weight: 49.9 kg

DRUGS (2)
  1. TERBUTALINE [Suspect]
     Active Substance: TERBUTALINE
     Indication: PROPHYLAXIS
     Route: 048
     Dates: start: 19921201, end: 19930725
  2. TERBUTALINE [Suspect]
     Active Substance: TERBUTALINE
     Indication: PREMATURE LABOUR
     Route: 048
     Dates: start: 19921201, end: 19930725

REACTIONS (7)
  - Anger [None]
  - Depression [None]
  - Maternal drugs affecting foetus [None]
  - Congenital brain damage [None]
  - Completed suicide [None]
  - Emotional poverty [None]
  - Memory impairment [None]

NARRATIVE: CASE EVENT DATE: 20150522
